FAERS Safety Report 10381526 (Version 1)
Quarter: 2014Q3

REPORT INFORMATION
  Report Type: Spontaneous
  Country: US (occurrence: None)
  Receive Date: 20140811
  Receipt Date: 20140811
  Transmission Date: 20150326
  Serious: Yes (Life-Threatening, Hospitalization, Other)
  Sender: FDA-Public Use
  Company Number: 2014JUB00068

PATIENT
  Age: 13 Year
  Sex: Female

DRUGS (6)
  1. BUPROPION [Suspect]
     Active Substance: BUPROPION
     Route: 048
  2. DIPHENHYDRAMINE (DIPHENHYDRAMINE) [Suspect]
     Active Substance: DIPHENHYDRAMINE
     Route: 048
  3. NAPROXEN (NAPROXEN) [Suspect]
     Active Substance: NAPROXEN
     Route: 048
  4. ACETAMINOPHEN (ACETAMINOPHEN) [Suspect]
     Active Substance: ACETAMINOPHEN
     Route: 048
  5. CITALOPRAM (CITALOPRAM) [Suspect]
     Active Substance: CITALOPRAM HYDROBROMIDE
     Route: 048
  6. OMEPRAZOLE (OMEPRAZOLE) [Suspect]
     Active Substance: OMEPRAZOLE
     Route: 048

REACTIONS (23)
  - Sinus tachycardia [None]
  - Hypohidrosis [None]
  - Bradycardia [None]
  - Intentional overdose [None]
  - Pyrexia [None]
  - Toxicity to various agents [None]
  - Electrocardiogram QT prolonged [None]
  - Anticholinergic syndrome [None]
  - Dry skin [None]
  - Disorientation [None]
  - Suicide attempt [None]
  - Tremor [None]
  - Urinary retention [None]
  - Muscle rigidity [None]
  - Flushing [None]
  - Agitation [None]
  - Hypertension [None]
  - Mydriasis [None]
  - Rhabdomyolysis [None]
  - Salivary hypersecretion [None]
  - Increased bronchial secretion [None]
  - Myoclonus [None]
  - Hallucination [None]
